FAERS Safety Report 9073330 (Version 1)
Quarter: 2013Q1

REPORT INFORMATION
  Report Type: Report from Study
  Country: US (occurrence: US)
  Receive Date: 20130129
  Receipt Date: 20130129
  Transmission Date: 20140127
  Serious: No
  Sender: FDA-Public Use
  Company Number: US-ABBOTT-12P-163-0932081-00

PATIENT
  Age: 41 Year
  Sex: Female
  Weight: 100.33 kg

DRUGS (8)
  1. HUMIRA 40 MG/0.8 ML PEN [Suspect]
     Indication: PSORIASIS
     Dates: start: 20120201
  2. HUMIRA 40 MG/0.8 ML PEN [Suspect]
     Indication: PSORIATIC ARTHROPATHY
  3. TILIA FE [Concomitant]
     Indication: CONTRACEPTION
  4. ONE A DAY VITAMIN [Concomitant]
     Indication: VITAMIN SUPPLEMENTATION
  5. OMEPRAZOLE [Concomitant]
     Indication: GASTROOESOPHAGEAL REFLUX DISEASE
  6. NASONEX [Concomitant]
     Indication: HYPERSENSITIVITY
  7. LYRICA [Concomitant]
     Indication: NEUROPATHY PERIPHERAL
  8. ALLEGRA-D [Concomitant]
     Indication: HYPERSENSITIVITY

REACTIONS (3)
  - Flushing [Recovered/Resolved]
  - Headache [Recovered/Resolved]
  - Eye pain [Recovered/Resolved]
